FAERS Safety Report 13618087 (Version 1)
Quarter: 2017Q2

REPORT INFORMATION
  Report Type: Spontaneous
  Country: US (occurrence: US)
  Receive Date: 20170606
  Receipt Date: 20170606
  Transmission Date: 20170830
  Serious: No
  Sender: FDA-Public Use
  Company Number: US-ASTRAZENECA-2017SE58888

PATIENT

DRUGS (1)
  1. SYMBICORT [Suspect]
     Active Substance: BUDESONIDE\FORMOTEROL FUMARATE DIHYDRATE
     Dosage: UNK UNKNOWN
     Route: 055

REACTIONS (4)
  - Hypogeusia [Unknown]
  - Sinusitis [Unknown]
  - Dyspnoea [Unknown]
  - Hyposmia [Unknown]
